FAERS Safety Report 5501426-5 (Version None)
Quarter: 2007Q4

REPORT INFORMATION
  Report Type: 
  Country: None (occurrence: None)
  Receive Date: 20071026
  Receipt Date: 20071026
  Transmission Date: 20080405
  Serious: Yes (Other)
  Sender: FDA-Public Use
  Company Number: None

PATIENT
  Age: 71 Year
  Sex: Male

DRUGS (5)
  1. FLUOROURACIL [Suspect]
     Dosage: 780MG BOLUS/4680MG OVER 46?
     Dates: start: 20071003
  2. ELOXATIN [Suspect]
     Dosage: 166 MG
  3. LEUCOVORIN [Concomitant]
  4. ZOFRAN [Concomitant]
  5. DECADRON [Concomitant]

REACTIONS (3)
  - BURNING SENSATION [None]
  - PRURITUS [None]
  - RASH MACULO-PAPULAR [None]
